FAERS Safety Report 14524407 (Version 8)
Quarter: 2018Q3

REPORT INFORMATION
  Report Type: Spontaneous
  Country: US (occurrence: US)
  Receive Date: 20180213
  Receipt Date: 20180906
  Transmission Date: 20181010
  Serious: Yes (Hospitalization, Other)
  Sender: FDA-Public Use
  Company Number: US-PFIZER INC-2018038492

PATIENT
  Age: 60 Year
  Sex: Female

DRUGS (1)
  1. IBRANCE [Suspect]
     Active Substance: PALBOCICLIB
     Indication: BREAST CANCER METASTATIC
     Dosage: 125 MG, 1X/DAY
     Route: 048
     Dates: start: 201801, end: 2018

REACTIONS (17)
  - Tumour pain [Unknown]
  - Drug dose omission [Unknown]
  - Confusional state [Unknown]
  - Somnolence [Unknown]
  - Nausea [Recovered/Resolved]
  - Malaise [Unknown]
  - Cough [Unknown]
  - Product packaging quantity issue [Unknown]
  - Dysphonia [Unknown]
  - Stress [Unknown]
  - Bronchitis [Unknown]
  - Vomiting [Unknown]
  - Aphonia [Unknown]
  - Cholelithiasis [Unknown]
  - Cardiac disorder [Unknown]
  - Gastrointestinal disorder [Unknown]
  - Feeling abnormal [Unknown]

NARRATIVE: CASE EVENT DATE: 2018
